FAERS Safety Report 4827627-7 (Version None)
Quarter: 2005Q4

REPORT INFORMATION
  Report Type: 
  Country: None (occurrence: None)
  Receive Date: 20051110
  Receipt Date: 20051025
  Transmission Date: 20060501
  Serious: Yes (Death)
  Sender: FDA-Public Use
  Company Number: 2005BL002981

PATIENT
  Sex: Female

DRUGS (4)
  1. ATROVENT [Suspect]
     Dosage: OROPHARYNGEAL
     Route: 049
  2. PREDNISOLONE SODIUM PHOSPHATE [Suspect]
  3. ALBUTEROL SULFATE [Suspect]
  4. FOSAMAX [Suspect]

REACTIONS (2)
  - CARDIAC FAILURE [None]
  - INFECTIVE EXACERBATION OF CHRONIC OBSTRUCTIVE AIRWAYS DISEASE [None]
